FAERS Safety Report 18473541 (Version 1)
Quarter: 2020Q4

REPORT INFORMATION
  Report Type: Spontaneous
  Country: US (occurrence: US)
  Receive Date: 20201106
  Receipt Date: 20201106
  Transmission Date: 20210114
  Serious: Yes (Other)
  Sender: FDA-Public Use
  Company Number: None

PATIENT
  Age: 38 Year
  Sex: Female
  Weight: 110.9 kg

DRUGS (5)
  1. ONDANSETRON 8MG ODT [Concomitant]
     Dates: start: 20181008
  2. NORVASC [Concomitant]
     Active Substance: AMLODIPINE BESYLATE
     Dates: start: 20200720
  3. BUTALBITAL-ASPIRIN-CAFFEINE 50-325-40MG [Concomitant]
     Dates: start: 20201006
  4. AIMOVIG [Suspect]
     Active Substance: ERENUMAB-AOOE
     Indication: MIGRAINE
     Dosage: ?          OTHER FREQUENCY:ONCE MONTHLY;?
     Route: 058
     Dates: start: 20201002
  5. DIAZEPAM 10MG [Concomitant]
     Active Substance: DIAZEPAM
     Dates: start: 20181112

REACTIONS (4)
  - Dizziness [None]
  - Headache [None]
  - Pain [None]
  - Eye pain [None]

NARRATIVE: CASE EVENT DATE: 20201102
